FAERS Safety Report 22322538 (Version 1)
Quarter: 2023Q2

REPORT INFORMATION
  Report Type: Spontaneous
  Country: US (occurrence: None)
  Receive Date: 20230516
  Receipt Date: 20230516
  Transmission Date: 20230722
  Serious: No
  Sender: FDA-Public Use
  Company Number: US-Axsome Therapeutics, Inc.-AXS202209-000054

PATIENT
  Age: 84 Year
  Sex: Male
  Weight: 95.25 kg

DRUGS (1)
  1. SUNOSI [Suspect]
     Active Substance: SOLRIAMFETOL
     Indication: Product used for unknown indication
     Dosage: 150 MG DAILY AT MORNING
     Route: 048

REACTIONS (2)
  - Weight decreased [Unknown]
  - Therapeutic product effect incomplete [Unknown]
